FAERS Safety Report 23431186 (Version 1)
Quarter: 2024Q1

REPORT INFORMATION
  Report Type: Spontaneous
  Country: US (occurrence: US)
  Receive Date: 20240123
  Receipt Date: 20240123
  Transmission Date: 20240410
  Serious: Yes (Hospitalization, Other)
  Sender: FDA-Public Use
  Company Number: US-HIKMA PHARMACEUTICALS-US-H14001-23-66544

PATIENT
  Age: 67 Year
  Sex: Female
  Weight: 61.68 kg

DRUGS (13)
  1. CARBOPLATIN [Suspect]
     Active Substance: CARBOPLATIN
     Dosage: AUC 5 (ON DAY 1 OF EACH 28-DAY CYCLE)
     Route: 042
     Dates: start: 20231025, end: 20231025
  2. CARBOPLATIN [Suspect]
     Active Substance: CARBOPLATIN
     Indication: Anal squamous cell carcinoma
     Dosage: AUC 5 DAY 1 OF EACH 28-DAY CYCLE
     Route: 042
     Dates: start: 20230628, end: 20230628
  3. CARBOPLATIN [Suspect]
     Active Substance: CARBOPLATIN
     Dosage: DOSE OF AUC 5 (ON DAY 1 OF EACH 28-DAY CYCLE)
     Route: 042
     Dates: start: 20230830, end: 20230830
  4. PACLITAXEL [Suspect]
     Active Substance: PACLITAXEL
     Indication: Anal squamous cell carcinoma
     Dosage: 80 MILLIGRAM/SQ. METER ON DAYS 1,8 AND 15 OF EACH 28 DAY CYCLE
     Route: 042
     Dates: start: 20230628, end: 20230628
  5. PACLITAXEL [Suspect]
     Active Substance: PACLITAXEL
     Dosage: 80 MILLIGRAM/SQ. METER, (ON DAYS 1, 8, 15 OF EACH 28-DAY CYCLE).
     Route: 042
     Dates: start: 20231011
  6. PACLITAXEL [Suspect]
     Active Substance: PACLITAXEL
     Dosage: 80 MILLIGRAM/SQ. METER, ON DAYS 1, 8 AND 15 OF EACH 28-DAY CYCLE
     Route: 042
     Dates: start: 20230906, end: 20230906
  7. PLACEBO [Suspect]
     Active Substance: UNSPECIFIED INGREDIENT
     Indication: Anal squamous cell carcinoma
     Dosage: UNKNOWN
     Route: 042
     Dates: start: 20230628, end: 20230830
  8. AVIBACTAM SODIUM\CEFTAZIDIME [Concomitant]
     Active Substance: AVIBACTAM SODIUM\CEFTAZIDIME
     Indication: Product used for unknown indication
     Dosage: UNK
     Route: 042
     Dates: start: 20230915, end: 20230918
  9. ENOXAPARIN SODIUM [Concomitant]
     Active Substance: ENOXAPARIN SODIUM
     Indication: Product used for unknown indication
     Dosage: UNK
     Route: 065
     Dates: start: 20230913, end: 20230920
  10. FAMOTIDINE [Concomitant]
     Active Substance: FAMOTIDINE
     Indication: Product used for unknown indication
     Dosage: UNK
     Route: 065
     Dates: start: 20230916, end: 20230919
  11. LOPERAMIDE [Concomitant]
     Active Substance: LOPERAMIDE
     Indication: Product used for unknown indication
     Dosage: UNK
     Route: 048
     Dates: start: 20230916, end: 20230916
  12. ACETAMINOPHEN [Concomitant]
     Active Substance: ACETAMINOPHEN
     Indication: Product used for unknown indication
     Dosage: UNK
     Route: 048
     Dates: start: 20230916, end: 20230916
  13. VANCOMYCIN [Concomitant]
     Active Substance: VANCOMYCIN
     Indication: Product used for unknown indication
     Dosage: UNK
     Route: 065
     Dates: start: 20230914, end: 20230924

REACTIONS (11)
  - Anaemia [Recovered/Resolved]
  - Uterine haemorrhage [Unknown]
  - Oedema peripheral [Unknown]
  - Venous thrombosis [Unknown]
  - Staphylococcus test positive [Unknown]
  - Klebsiella test positive [Unknown]
  - Vaginal haemorrhage [Unknown]
  - Hydronephrosis [Unknown]
  - Cystitis [Unknown]
  - Endometrial thickening [Unknown]
  - Hydroureter [Unknown]

NARRATIVE: CASE EVENT DATE: 20230909
